FAERS Safety Report 25210118 (Version 1)
Quarter: 2025Q2

REPORT INFORMATION
  Report Type: Spontaneous
  Country: AU (occurrence: AU)
  Receive Date: 20250417
  Receipt Date: 20250417
  Transmission Date: 20250716
  Serious: Yes (Other)
  Sender: PFIZER
  Company Number: AU-PFIZER INC-202500075331

PATIENT
  Age: 14 Week
  Sex: Female

DRUGS (1)
  1. GENOTROPIN [Suspect]
     Active Substance: SOMATROPIN
     Indication: Hyperglycaemia

REACTIONS (4)
  - Hypopituitarism foetal [Unknown]
  - Overdose [Unknown]
  - Device delivery system issue [Unknown]
  - Off label use [Unknown]
